FAERS Safety Report 4626065-X (Version None)
Quarter: 2005Q1

REPORT INFORMATION
  Report Type: 
  Country: None (occurrence: None)
  Receive Date: 20050330
  Receipt Date: 20050317
  Transmission Date: 20050727
  Serious: Yes (Hospitalization)
  Sender: FDA-Public Use
  Company Number: 2005046594

PATIENT
  Age: 65 Year
  Sex: Female
  Weight: 62 kg

DRUGS (3)
  1. HYDROCORTISONE SODIUM SUCCINATE [Suspect]
     Indication: RASH
     Dosage: 100 MG (300 MG, INTRAVENOUS)
     Route: 042
     Dates: start: 20041201, end: 20041201
  2. ATORVASTATIN CALCIUM [Concomitant]
  3. HERBAL PREPARATION (HERBAL PREPARATION) [Concomitant]

REACTIONS (2)
  - BLOOD PRESSURE DECREASED [None]
  - OXYGEN SATURATION DECREASED [None]
